FAERS Safety Report 23225429 (Version 1)
Quarter: 2023Q4

REPORT INFORMATION
  Report Type: Spontaneous
  Country: CO (occurrence: CO)
  Receive Date: 20231124
  Receipt Date: 20231124
  Transmission Date: 20240109
  Serious: Yes (Death, Hospitalization, Other)
  Sender: FDA-Public Use
  Company Number: CO-STERISCIENCE B.V.-2023-ST-002213

PATIENT
  Age: 4 Month
  Sex: Female

DRUGS (33)
  1. VANCOMYCIN [Suspect]
     Active Substance: VANCOMYCIN
     Indication: Bacillus infection
     Dosage: 60 MILLIGRAM/KILOGRAM, QD
     Route: 042
  2. VANCOMYCIN [Suspect]
     Active Substance: VANCOMYCIN
     Indication: Staphylococcal infection
  3. VANCOMYCIN [Suspect]
     Active Substance: VANCOMYCIN
     Indication: Clostridium difficile infection
  4. METRONIDAZOLE [Suspect]
     Active Substance: METRONIDAZOLE
     Indication: Bacillus infection
     Dosage: UNK
     Route: 048
  5. METRONIDAZOLE [Suspect]
     Active Substance: METRONIDAZOLE
     Indication: Staphylococcal infection
  6. METRONIDAZOLE [Suspect]
     Active Substance: METRONIDAZOLE
     Indication: Clostridium difficile infection
  7. NOREPINEPHRINE [Suspect]
     Active Substance: NOREPINEPHRINE
     Indication: Hypotension
     Dosage: UNK
     Route: 065
  8. BACILLUS SUBTILIS [Concomitant]
     Active Substance: BACILLUS SUBTILIS
     Indication: Probiotic therapy
     Dosage: TWO BILLION SPORES PER 5ML, RECEIVED 4 DOSES
     Route: 048
  9. LACTATED RINGERS SOLUTION [Concomitant]
     Active Substance: CALCIUM CHLORIDE\POTASSIUM CHLORIDE\SODIUM CHLORIDE\SODIUM LACTATE
     Indication: Product used for unknown indication
     Dosage: BOLUS OF 10 ML PER KG DOSE
     Route: 065
  10. SALINE [Concomitant]
     Active Substance: SODIUM CHLORIDE
     Indication: Product used for unknown indication
     Dosage: GLUCOSE IN SODIUM CHLORIDE SOLUTION 500 ML INFUSION AT 29 ML PER HR IN 6 HOURS
     Route: 042
  11. SALINE [Concomitant]
     Active Substance: SODIUM CHLORIDE
     Dosage: 0.9%; 500 ML OF GLUCOSE IN SODIUM CHLORIDE AT 20 ML PER HR
     Route: 065
  12. SALINE [Concomitant]
     Active Substance: SODIUM CHLORIDE
     Dosage: 0.9%; GLUCOSE IN SODIUM CHLORIDE 500 CC WAS DECREASED TO 15 ML PER HR
     Route: 042
  13. CEFTRIAXONE [Concomitant]
     Active Substance: CEFTRIAXONE\CEFTRIAXONE SODIUM
     Indication: Evidence based treatment
     Dosage: 50 MILLIGRAM/KILOGRAM, QD
     Route: 065
  14. CEFTRIAXONE [Concomitant]
     Active Substance: CEFTRIAXONE\CEFTRIAXONE SODIUM
     Dosage: 75 MILLIGRAM/KILOGRAM, QD
     Route: 065
  15. CEFTRIAXONE [Concomitant]
     Active Substance: CEFTRIAXONE\CEFTRIAXONE SODIUM
     Dosage: 100 MILLIGRAM/KILOGRAM, QD
     Route: 065
  16. DEXTROSE [Concomitant]
     Active Substance: DEXTROSE\DEXTROSE MONOHYDRATE
     Indication: Product used for unknown indication
     Dosage: 500 ML OF GLUCOSE IN SODIUM CHLORIDE AT 20 ML PER HR; INFUSION
     Route: 042
  17. DEXTROSE [Concomitant]
     Active Substance: DEXTROSE\DEXTROSE MONOHYDRATE
     Dosage: GLUCOSE IN SODIUM CHLORIDE 500 CC WAS DECREASED TO 15 ML PER HR; INFUSION
     Route: 042
  18. DEXTROSE [Concomitant]
     Active Substance: DEXTROSE\DEXTROSE MONOHYDRATE
     Dosage: GLUCOSE IN SODIUM CHLORIDE SOLUTION 500 ML INFUSION AT 29 ML PER HR IN 6 HOURS; INFUSION
     Route: 042
  19. FRESH FROZEN PLASMA [Concomitant]
     Active Substance: HUMAN PLASMA
     Indication: Product used for unknown indication
     Dosage: 40 CC
     Route: 065
  20. OXACILLIN [Concomitant]
     Active Substance: OXACILLIN SODIUM
     Indication: Antibiotic therapy
     Dosage: 200 MILLIGRAM/KILOGRAM, QD
     Route: 065
  21. EPINEPHRINE [Concomitant]
     Active Substance: EPINEPHRINE
     Indication: Product used for unknown indication
     Dosage: UNK; INFUSION
     Route: 042
  22. CALCIUM GLUCONATE [Concomitant]
     Active Substance: CALCIUM GLUCONATE
     Indication: Product used for unknown indication
     Dosage: UNK
     Route: 065
  23. FENTANYL [Concomitant]
     Active Substance: FENTANYL\FENTANYL CITRATE
     Indication: Product used for unknown indication
     Dosage: UNK
     Route: 065
  24. REMIFENTANIL [Concomitant]
     Active Substance: REMIFENTANIL
     Indication: Product used for unknown indication
     Dosage: UNK
     Route: 065
  25. CLINDAMYCIN [Concomitant]
     Active Substance: CLINDAMYCIN
     Indication: Staphylococcal infection
     Dosage: 40 MILLIGRAM/KILOGRAM, QD
     Route: 065
  26. CEFTAZIDIME [Concomitant]
     Active Substance: CEFTAZIDIME
     Indication: Antibiotic therapy
     Dosage: 150 MILLIGRAM/KILOGRAM, QD
     Route: 065
  27. MILRINONE [Concomitant]
     Active Substance: MILRINONE
     Indication: Myocarditis
     Dosage: UNK; INFUSION
     Route: 042
  28. FUROSEMIDE [Concomitant]
     Active Substance: FUROSEMIDE
     Indication: Myocarditis
     Dosage: UNK
     Route: 065
  29. Immunoglobulin [Concomitant]
     Indication: Myocarditis
     Dosage: 1 GRAM PER KILOGRAM; SINGLE DOSE
     Route: 042
  30. CIPROFLOXACIN [Concomitant]
     Active Substance: CIPROFLOXACIN
     Indication: Bacillus infection
     Dosage: 30 MILLIGRAM/KILOGRAM, QD
     Route: 065
  31. CEFTAROLINE [Concomitant]
     Active Substance: CEFTAROLINE
     Indication: Bacillus infection
     Dosage: 8 MILLIGRAM/KILOGRAM, Q8H
     Route: 065
  32. SPIRONOLACTONE [Concomitant]
     Active Substance: SPIRONOLACTONE
     Indication: Hypertension
     Dosage: UNK
     Route: 065
  33. VITAMIN K [Concomitant]
     Active Substance: PHYTONADIONE
     Indication: Product used for unknown indication
     Dosage: UNK
     Route: 065

REACTIONS (1)
  - Drug ineffective [Fatal]
